FAERS Safety Report 20656471 (Version 2)
Quarter: 2022Q2

REPORT INFORMATION
  Report Type: Spontaneous
  Country: US (occurrence: US)
  Receive Date: 20220331
  Receipt Date: 20220511
  Transmission Date: 20220721
  Serious: Yes (Other)
  Sender: FDA-Public Use
  Company Number: US-CELLTRION INC.-2022US003661

PATIENT

DRUGS (7)
  1. TRUXIMA [Suspect]
     Active Substance: RITUXIMAB-ABBS
     Indication: Dermatomyositis
     Dosage: 10 MG/ML, EVERY 2 WEEKS
     Route: 042
     Dates: start: 20220210
  2. TRUXIMA [Suspect]
     Active Substance: RITUXIMAB-ABBS
     Dosage: 10 MG/ML, EVERY 2 WEEKS
     Route: 042
     Dates: start: 20220221
  3. PREDNISONE [Concomitant]
     Active Substance: PREDNISONE
  4. SYNJARDY XR [Concomitant]
     Active Substance: EMPAGLIFLOZIN\METFORMIN HYDROCHLORIDE
  5. ROSUVASTATIN [Concomitant]
     Active Substance: ROSUVASTATIN
  6. ESOMEPRAZOLE [Concomitant]
     Active Substance: ESOMEPRAZOLE
  7. FISH OIL [Concomitant]
     Active Substance: FISH OIL

REACTIONS (2)
  - Dermatomyositis [Unknown]
  - Off label use [Unknown]

NARRATIVE: CASE EVENT DATE: 20220203
